FAERS Safety Report 6054838-8 (Version None)
Quarter: 2009Q1

REPORT INFORMATION
  Report Type: 
  Country: None (occurrence: None)
  Receive Date: 20090128
  Receipt Date: 20090121
  Transmission Date: 20090719
  Serious: Yes (Hospitalization)
  Sender: FDA-Public Use
  Company Number: US-ASTRAZENECA-2009UW01710

PATIENT
  Sex: Female

DRUGS (4)
  1. TOPROL-XL [Suspect]
     Dosage: CRUSHING TOPROL XL AND PUTTING IT INTO ENTERAL FEEDINGS
     Route: 051
     Dates: start: 20081101
  2. TAGAMET [Concomitant]
  3. FLEXOR [Concomitant]
  4. LORTAB [Concomitant]

REACTIONS (4)
  - BLOOD PRESSURE FLUCTUATION [None]
  - INCORRECT ROUTE OF DRUG ADMINISTRATION [None]
  - INTESTINAL OBSTRUCTION [None]
  - WRONG TECHNIQUE IN DRUG USAGE PROCESS [None]
